FAERS Safety Report 6374399-3 (Version None)
Quarter: 2009Q3

REPORT INFORMATION
  Report Type: 
  Country: None (occurrence: None)
  Receive Date: 20090921
  Receipt Date: 20090921
  Transmission Date: 20100115
  Serious: No
  Sender: FDA-Public Use
  Company Number: None

PATIENT
  Sex: Female
  Weight: 83.9154 kg

DRUGS (1)
  1. ACTONEL [Suspect]
     Indication: OSTEOPOROSIS
     Dosage: 35MG. ONE/WEEK PHARM
     Dates: start: 20090601, end: 20090701

REACTIONS (4)
  - BONE PAIN [None]
  - PALPITATIONS [None]
  - RASH ERYTHEMATOUS [None]
  - URTICARIA [None]
